FAERS Safety Report 7374583-6 (Version None)
Quarter: 2011Q1

REPORT INFORMATION
  Report Type: 
  Country: None (occurrence: None)
  Receive Date: 20110325
  Receipt Date: 20100406
  Transmission Date: 20110831
  Serious: No
  Sender: FDA-Public Use
  Company Number: US-MYLANLABS-2010S1005947

PATIENT
  Age: 50 Year
  Sex: Female
  Weight: 108.86 kg

DRUGS (7)
  1. FENTANYL-100 [Suspect]
     Indication: BACK PAIN
     Dosage: CHANGED Q. 72 HOURS.
     Route: 062
     Dates: start: 20090101
  2. LEVOXYL [Concomitant]
     Indication: HYPOTHYROIDISM
     Dates: start: 20090101
  3. CYCLOBENZAPRINE [Concomitant]
     Indication: MUSCLE SPASMS
  4. CLARINEX /01398501/ [Concomitant]
     Indication: HYPERSENSITIVITY
     Dates: start: 20050101
  5. SORIATANE [Concomitant]
     Indication: PSORIASIS
  6. SINGULAIR [Concomitant]
     Indication: HYPERSENSITIVITY
     Dates: start: 20050101
  7. DICLOFENAC [Concomitant]
     Indication: INFLAMMATION

REACTIONS (4)
  - DRUG WITHDRAWAL SYNDROME [None]
  - BACK PAIN [None]
  - DRUG INEFFECTIVE [None]
  - DRUG ADMINISTRATION ERROR [None]
